FAERS Safety Report 5201636-0 (Version None)
Quarter: 2006Q4

REPORT INFORMATION
  Report Type: 
  Country: None (occurrence: None)
  Receive Date: 20061006
  Receipt Date: 20050928
  Transmission Date: 20070319
  Serious: Yes (Other)
  Sender: FDA-Public Use
  Company Number: 200511526BWH

PATIENT
  Age: 62 Year
  Sex: Male

DRUGS (2)
  1. CIPROFLOXACIN [Suspect]
     Indication: CYSTITIS
  2. CIPROFLOXACIN [Suspect]
     Indication: CYSTITIS

REACTIONS (4)
  - EATING DISORDER [None]
  - HALLUCINATION, VISUAL [None]
  - INSOMNIA [None]
  - MENTAL STATUS CHANGES [None]
